FAERS Safety Report 5341700-9 (Version None)
Quarter: 2007Q2

REPORT INFORMATION
  Report Type: 
  Country: None (occurrence: None)
  Receive Date: 20070530
  Receipt Date: 20070516
  Transmission Date: 20071010
  Serious: Yes (Hospitalization)
  Sender: FDA-Public Use
  Company Number: 100#03#2007-01719

PATIENT
  Age: 14 Hour
  Sex: Male

DRUGS (3)
  1. SERTRALINE [Suspect]
     Indication: DRUG EXPOSURE DURING PREGNANCY
     Dosage: 50MG (1/1 DAYS)
     Route: 064
     Dates: start: 20070101
  2. BENZYLPENICILLIN (BENZYLPENICILLIN) (BENZYLPENICILLIN) [Concomitant]
  3. GENTAMICIN (GENTAMICIN) (GENTAMICIN) [Concomitant]

REACTIONS (9)
  - CAESAREAN SECTION [None]
  - CONVULSION NEONATAL [None]
  - DRUG EXPOSURE DURING PREGNANCY [None]
  - DYSKINESIA NEONATAL [None]
  - GRUNTING [None]
  - HYPERVIGILANCE [None]
  - NEONATAL DISORDER [None]
  - NEONATAL TACHYPNOEA [None]
  - TREMOR NEONATAL [None]
